FAERS Safety Report 7754838-3 (Version None)
Quarter: 2011Q3

REPORT INFORMATION
  Report Type: 
  Country: None (occurrence: None)
  Receive Date: 20110916
  Receipt Date: 20110907
  Transmission Date: 20111222
  Serious: No
  Sender: FDA-Public Use
  Company Number: US-BIOGENIDEC-2011BI023222

PATIENT
  Sex: Female

DRUGS (2)
  1. TYSABRI [Suspect]
     Indication: MULTIPLE SCLEROSIS
     Route: 042
     Dates: start: 20080711, end: 20100806
  2. TYSABRI [Suspect]
     Route: 042
     Dates: start: 20110823

REACTIONS (4)
  - ALCOHOL ABUSE [None]
  - HEPATIC ENZYME INCREASED [None]
  - HAEMOCHROMATOSIS [None]
  - LIVER FUNCTION TEST ABNORMAL [None]
